FAERS Safety Report 20886508 (Version 2)
Quarter: 2022Q2

REPORT INFORMATION
  Report Type: Report from Study
  Country: US (occurrence: US)
  Receive Date: 20220527
  Receipt Date: 20220616
  Transmission Date: 20220721
  Serious: Yes (Other)
  Sender: FDA-Public Use
  Company Number: US-NOVARTISPH-NVSC2022US021500

PATIENT
  Age: 80 Year
  Sex: Male
  Weight: 90.1 kg

DRUGS (1)
  1. PLUVICTO [Suspect]
     Active Substance: LUTETIUM LU-177 VIPIVOTIDE TETRAXETAN
     Indication: Prostate cancer
     Dosage: 1 DOSE/CYCLE
     Route: 042
     Dates: start: 20211008

REACTIONS (7)
  - Syncope [Unknown]
  - Dry mouth [Not Recovered/Not Resolved]
  - Fall [Unknown]
  - Influenza like illness [Recovered/Resolved]
  - Rib fracture [Recovering/Resolving]
  - Fatigue [Not Recovered/Not Resolved]
  - Flushing [Unknown]

NARRATIVE: CASE EVENT DATE: 20211008
